FAERS Safety Report 7753541-3 (Version None)
Quarter: 2011Q3

REPORT INFORMATION
  Report Type: 
  Country: None (occurrence: None)
  Receive Date: 20110915
  Receipt Date: 20110912
  Transmission Date: 20111222
  Serious: Yes (Death, Other)
  Sender: FDA-Public Use
  Company Number: GB-JNJFOC-20110904969

PATIENT
  Sex: Female

DRUGS (2)
  1. DOXORUBICIN HYDROCHLORIDE [Suspect]
     Indication: OVARIAN CANCER METASTATIC
     Route: 042
  2. DOXORUBICIN HYDROCHLORIDE [Suspect]
     Route: 042

REACTIONS (4)
  - GENERAL PHYSICAL HEALTH DETERIORATION [None]
  - NEUTROPENIA [None]
  - RENAL FAILURE [None]
  - INCORRECT DOSE ADMINISTERED [None]
